FAERS Safety Report 16798947 (Version 1)
Quarter: 2019Q3

REPORT INFORMATION
  Report Type: Spontaneous
  Country: US (occurrence: US)
  Receive Date: 20190722
  Receipt Date: 20190722
  Transmission Date: 20191005
  Serious: Yes (Hospitalization)
  Sender: FDA-Public Use
  Company Number: None

PATIENT
  Age: 64 Year
  Sex: Female

DRUGS (1)
  1. XELJANZ XR [Suspect]
     Active Substance: TOFACITINIB CITRATE
     Indication: RHEUMATOID ARTHRITIS
     Dosage: 1 TAB ONCE QD PO
     Route: 048
     Dates: start: 20180426

REACTIONS (4)
  - Arthralgia [None]
  - Fall [None]
  - Upper limb fracture [None]
  - Therapy cessation [None]

NARRATIVE: CASE EVENT DATE: 20190715
